FAERS Safety Report 6057836-3 (Version None)
Quarter: 2009Q1

REPORT INFORMATION
  Report Type: 
  Country: None (occurrence: None)
  Receive Date: 20090129
  Receipt Date: 20090121
  Transmission Date: 20090719
  Serious: Yes (Hospitalization, Other)
  Sender: FDA-Public Use
  Company Number: JP-ABBOTT-08P-086-0464077-00

PATIENT
  Sex: Male

DRUGS (12)
  1. CLARITHROMYCIN [Suspect]
     Indication: HELICOBACTER INFECTION
     Route: 048
     Dates: start: 20080219, end: 20080225
  2. TAKEPRON OD TABLETS [Suspect]
     Indication: DUODENAL ULCER
     Route: 048
     Dates: start: 20080129
  3. TAKEPRON OD TABLETS [Suspect]
     Indication: HELICOBACTER INFECTION
  4. GLIBENCLAMIDE [Suspect]
     Indication: DIABETES MELLITUS
     Route: 048
     Dates: end: 20080124
  5. GLIBENCLAMIDE [Suspect]
     Route: 048
     Dates: start: 20080202, end: 20080222
  6. GLIBENCLAMIDE [Suspect]
     Route: 048
     Dates: start: 20080226, end: 20080227
  7. GLIBENCLAMIDE [Suspect]
     Route: 048
     Dates: start: 20080228, end: 20080307
  8. GLIBENCLAMIDE [Suspect]
     Route: 048
     Dates: start: 20080313, end: 20080323
  9. AMOXICILLIN TRIHYDRATE [Concomitant]
     Indication: HELICOBACTER INFECTION
     Route: 048
     Dates: start: 20080219, end: 20080225
  10. DIOVAN [Concomitant]
     Indication: HYPERTENSION
     Route: 048
  11. ADALAT [Concomitant]
     Indication: HYPERTENSION
     Route: 048
  12. INSULIN [Concomitant]
     Indication: DRUG USE FOR UNKNOWN INDICATION
     Dates: start: 20080101, end: 20080202

REACTIONS (12)
  - DEPRESSED LEVEL OF CONSCIOUSNESS [None]
  - DIARRHOEA [None]
  - DRUG INTERACTION [None]
  - DUODENAL PERFORATION [None]
  - HEART RATE DECREASED [None]
  - HYPERHIDROSIS [None]
  - HYPERVENTILATION [None]
  - HYPOGLYCAEMIA [None]
  - HYPOPHAGIA [None]
  - TACHYPNOEA [None]
  - UNRESPONSIVE TO STIMULI [None]
  - WHEEZING [None]
